FAERS Safety Report 6113844-5 (Version None)
Quarter: 2009Q1

REPORT INFORMATION
  Report Type: 
  Country: None (occurrence: None)
  Receive Date: 20090312
  Receipt Date: 20090304
  Transmission Date: 20090719
  Serious: Yes (Other)
  Sender: FDA-Public Use
  Company Number: US-ABBOTT-09P-163-0560849-00

PATIENT
  Sex: Female
  Weight: 47.67 kg

DRUGS (8)
  1. HUMIRA [Suspect]
     Indication: RHEUMATOID ARTHRITIS
     Route: 058
     Dates: start: 20060101
  2. METHOTREXATE [Concomitant]
     Indication: RHEUMATOID ARTHRITIS
     Dosage: 20MG PER WEEK
     Route: 048
  3. FOLIC ACID [Concomitant]
     Indication: PROPHYLAXIS
     Route: 048
  4. LORTAB [Concomitant]
     Indication: PAIN
     Dosage: 500 MG Q 4-6 HRS PRN
     Route: 048
  5. MOBIC [Concomitant]
     Indication: PAIN
     Route: 048
  6. ALPHAGAN [Concomitant]
     Indication: GLAUCOMA
     Dosage: RIGHT EYE
     Route: 047
  7. LEVOBUNOLOL HCL [Concomitant]
     Indication: PROPHYLAXIS
     Dosage: RIGHT EYE
     Route: 047
     Dates: start: 20090209
  8. PRED FORTE [Concomitant]
     Indication: PROPHYLAXIS
     Dosage: RIGHT EYE
     Route: 047
     Dates: start: 20090209

REACTIONS (4)
  - CATARACT [None]
  - HEADACHE [None]
  - RHINORRHOEA [None]
  - SKIN DISCOLOURATION [None]
